FAERS Safety Report 24702915 (Version 1)
Quarter: 2024Q4

REPORT INFORMATION
  Report Type: Report from Study
  Country: DE (occurrence: DE)
  Receive Date: 20241205
  Receipt Date: 20241205
  Transmission Date: 20250115
  Serious: Yes (Hospitalization, Other)
  Sender: ABBVIE
  Company Number: DE-ABBVIE-6026230

PATIENT
  Age: 25 Year
  Sex: Male
  Weight: 111 kg

DRUGS (1)
  1. SKYRIZI [Suspect]
     Active Substance: RISANKIZUMAB-RZAA
     Indication: Psoriasis
     Dosage: 150MG/ 12 WKS. ON 1 D/WK.
     Route: 058
     Dates: start: 20210714

REACTIONS (3)
  - Bone cyst [Recovered/Resolved]
  - Arthralgia [Unknown]
  - Upper limb fracture [Unknown]

NARRATIVE: CASE EVENT DATE: 20220120
